FAERS Safety Report 7519255-X (Version None)
Quarter: 2011Q2

REPORT INFORMATION
  Report Type: 
  Country: None (occurrence: None)
  Receive Date: 20110602
  Receipt Date: 20110526
  Transmission Date: 20111010
  Serious: Yes (Hospitalization)
  Sender: FDA-Public Use
  Company Number: US-GILEAD-2011-0038094

PATIENT
  Sex: Female

DRUGS (18)
  1. PREDNISONE [Concomitant]
  2. LETAIRIS [Suspect]
     Indication: PULMONARY HYPERTENSION
     Route: 048
     Dates: start: 20090109
  3. DOUSATE [Concomitant]
  4. METOPROLOL TARTRATE [Concomitant]
  5. RIFAXIMIN [Concomitant]
  6. PANTOPRAZOLE [Concomitant]
  7. PYRIDOXINE HCL [Concomitant]
  8. ALBUTEROL SULFATE AUTOHALER [Concomitant]
  9. ISONIAZID [Concomitant]
  10. FISH OIL [Concomitant]
  11. MULTI-VITAMIN [Concomitant]
  12. LETAIRIS [Suspect]
     Indication: SYSTEMIC LUPUS ERYTHEMATOSUS
  13. CALCIUM CARBONATE [Concomitant]
  14. ADCIRCA [Concomitant]
  15. REMODULIN [Concomitant]
  16. FONDAPARINUX SODIUM [Concomitant]
  17. IPRATROPIUM BROMIDE [Concomitant]
  18. SPIRONOLACTONE [Concomitant]

REACTIONS (1)
  - PLEURAL EFFUSION [None]
